FAERS Safety Report 7305638-X (Version None)
Quarter: 2011Q1

REPORT INFORMATION
  Report Type: 
  Country: None (occurrence: None)
  Receive Date: 20110222
  Receipt Date: 20110215
  Transmission Date: 20110831
  Serious: Yes (Hospitalization)
  Sender: FDA-Public Use
  Company Number: JP-ROCHE-735734

PATIENT
  Sex: Female
  Weight: 39 kg

DRUGS (10)
  1. SELBEX [Concomitant]
     Dosage: DOSE FORM: PERORAL AGENT
     Route: 048
  2. OMEPRAL [Concomitant]
     Route: 048
     Dates: start: 20081128
  3. CEVIMELINE HYDROCHLORIDE [Concomitant]
     Dosage: DRUG: PAXIL(PAROXETINE HYDROCHLORIDE HYDRATE)
     Route: 048
  4. PREDONINE [Concomitant]
     Route: 048
  5. CALCIUM LACTATE [Concomitant]
     Dosage: DOSE FORM: PERORAL AGENT
     Route: 048
  6. MEILAX [Concomitant]
     Dosage: DRUG: MEILAX(ETHYL LOFLAZEPATE)
     Route: 048
  7. ACTEMRA [Suspect]
     Indication: RHEUMATOID ARTHRITIS
     Route: 041
     Dates: start: 20100915, end: 20100915
  8. BENET [Concomitant]
     Dosage: BENET(SODIUM RISEDRONATE HYDRATE)
     Route: 048
  9. ALFAROL [Concomitant]
     Dosage: DRUG: ALFAROL CAPSULES
     Route: 048
  10. PAXIL [Concomitant]
     Dosage: DRUG:PAXIL(PAROXETINE HYDROCHLORIDE HYDRATE)
     Route: 048

REACTIONS (9)
  - PLATELET COUNT DECREASED [None]
  - ABDOMINAL PAIN [None]
  - HYPOAESTHESIA [None]
  - NASOPHARYNGITIS [None]
  - ARTHRALGIA [None]
  - RHINORRHOEA [None]
  - PYREXIA [None]
  - SNEEZING [None]
  - OROPHARYNGEAL PAIN [None]
